FAERS Safety Report 15871112 (Version 1)
Quarter: 2019Q1

REPORT INFORMATION
  Report Type: Spontaneous
  Country: US (occurrence: US)
  Receive Date: 20190126
  Receipt Date: 20190126
  Transmission Date: 20190417
  Serious: No
  Sender: FDA-Public Use
  Company Number: US-SHIRE-US201901943

PATIENT
  Sex: Female

DRUGS (1)
  1. XIIDRA [Suspect]
     Active Substance: LIFITEGRAST
     Indication: PRODUCT USED FOR UNKNOWN INDICATION
     Route: 047

REACTIONS (7)
  - Dysgeusia [Unknown]
  - Instillation site pain [Unknown]
  - Instillation site pruritus [Unknown]
  - Instillation site reaction [Unknown]
  - Instillation site swelling [Unknown]
  - Instillation site erythema [Unknown]
  - Vision blurred [Unknown]
